FAERS Safety Report 9306651 (Version 1)
Quarter: 2013Q2

REPORT INFORMATION
  Report Type: Report from Study
  Country: US (occurrence: US)
  Receive Date: 20130523
  Receipt Date: 20130523
  Transmission Date: 20140414
  Serious: Yes (Other)
  Sender: FDA-Public Use
  Company Number: US-JNJFOC-20130508980

PATIENT
  Age: 67 Year
  Sex: Female
  Weight: 111.13 kg

DRUGS (19)
  1. STELARA [Suspect]
     Indication: PSORIASIS
     Route: 058
     Dates: start: 2011
  2. METHOTREXATE [Concomitant]
     Indication: ARTHRITIS
     Route: 058
     Dates: start: 2010
  3. ENBREL [Concomitant]
     Indication: PSORIATIC ARTHROPATHY
     Dates: end: 201305
  4. ENBREL [Concomitant]
     Indication: RHEUMATOID ARTHRITIS
     Dates: end: 201305
  5. GLIMEPIRIDE [Concomitant]
     Indication: DIABETES MELLITUS
     Route: 048
     Dates: start: 20080509
  6. GLIMEPIRIDE [Concomitant]
     Indication: DIABETES MELLITUS
     Route: 048
     Dates: start: 20080509
  7. GLIMEPIRIDE [Concomitant]
     Indication: DIABETES MELLITUS
     Route: 048
     Dates: end: 20130509
  8. ALLOPURINOL [Concomitant]
     Indication: GOUT
     Route: 048
     Dates: start: 2012
  9. PRAVASTATIN SODIUM [Concomitant]
     Indication: BLOOD CHOLESTEROL ABNORMAL
     Route: 048
     Dates: start: 2012
  10. TRAZADOL [Concomitant]
     Indication: SLEEP DISORDER
     Route: 048
     Dates: start: 2013
  11. KLOR  CON [Concomitant]
     Route: 048
     Dates: start: 201305
  12. LOSARTAN AND HYDROCHLOROTHIAZIDE [Concomitant]
     Indication: HYPERTENSION
     Dosage: 100/25 MG
     Route: 048
     Dates: start: 2013
  13. MECLIZINE [Concomitant]
     Indication: VERTIGO
     Route: 048
     Dates: start: 2000
  14. MONTELUKAST [Concomitant]
     Indication: MULTIPLE ALLERGIES
     Route: 048
     Dates: start: 2011
  15. FOLIC ACID [Concomitant]
     Route: 048
     Dates: start: 2011
  16. GABAPENTIN [Concomitant]
     Indication: NERVE INJURY
     Route: 048
     Dates: start: 2002
  17. ALL OTHER THERAPEUTIC DRUGS [Concomitant]
     Indication: MUSCLE SPASMS
     Route: 048
     Dates: start: 2002
  18. PAXIL [Concomitant]
     Indication: ANXIETY
     Route: 048
     Dates: start: 2007
  19. PAXIL [Concomitant]
     Indication: DEPRESSION
     Route: 048
     Dates: start: 2007

REACTIONS (5)
  - Chronic obstructive pulmonary disease [Not Recovered/Not Resolved]
  - Weight decreased [Not Recovered/Not Resolved]
  - Dysphonia [Not Recovered/Not Resolved]
  - Blood pressure increased [Unknown]
  - Blood glucose increased [Unknown]
